FAERS Safety Report 14282370 (Version 1)
Quarter: 2017Q4

REPORT INFORMATION
  Report Type: Spontaneous
  Country: US (occurrence: US)
  Receive Date: 20171213
  Receipt Date: 20171213
  Transmission Date: 20180321
  Serious: No
  Sender: FDA-Public Use
  Company Number: US-ALLERGAN-1757923US

PATIENT
  Sex: Female
  Weight: 77.98 kg

DRUGS (2)
  1. TAZORAC [Concomitant]
     Active Substance: TAZAROTENE
     Indication: PRODUCT USED FOR UNKNOWN INDICATION
  2. ACZONE [Suspect]
     Active Substance: DAPSONE
     Indication: ACNE
     Dosage: UNK
     Route: 061
     Dates: start: 201708

REACTIONS (4)
  - Lip swelling [Recovered/Resolved]
  - Hypersensitivity [Recovered/Resolved]
  - Application site pruritus [Recovered/Resolved]
  - Lip pain [Recovered/Resolved]
